FAERS Safety Report 25846259 (Version 1)
Quarter: 2025Q3

REPORT INFORMATION
  Report Type: Spontaneous
  Country: US (occurrence: US)
  Receive Date: 20250925
  Receipt Date: 20250925
  Transmission Date: 20251021
  Serious: Yes (Other)
  Sender: MYLAN
  Company Number: US-MYLANLABS-2025M1081213

PATIENT
  Age: 64 Year
  Sex: Male

DRUGS (44)
  1. LENALIDOMIDE [Suspect]
     Active Substance: LENALIDOMIDE
     Indication: Plasma cell myeloma
  2. LENALIDOMIDE [Suspect]
     Active Substance: LENALIDOMIDE
     Route: 065
  3. LENALIDOMIDE [Suspect]
     Active Substance: LENALIDOMIDE
     Route: 065
  4. LENALIDOMIDE [Suspect]
     Active Substance: LENALIDOMIDE
  5. DEXAMETHASONE [Suspect]
     Active Substance: DEXAMETHASONE
     Indication: Plasma cell myeloma
  6. DEXAMETHASONE [Suspect]
     Active Substance: DEXAMETHASONE
     Route: 065
  7. DEXAMETHASONE [Suspect]
     Active Substance: DEXAMETHASONE
     Route: 065
  8. DEXAMETHASONE [Suspect]
     Active Substance: DEXAMETHASONE
  9. MELPHALAN [Suspect]
     Active Substance: MELPHALAN
     Indication: Bone marrow conditioning regimen
  10. MELPHALAN [Suspect]
     Active Substance: MELPHALAN
     Route: 065
  11. MELPHALAN [Suspect]
     Active Substance: MELPHALAN
     Route: 065
  12. MELPHALAN [Suspect]
     Active Substance: MELPHALAN
  13. GABAPENTIN [Suspect]
     Active Substance: GABAPENTIN
     Indication: Neuropathy peripheral
  14. GABAPENTIN [Suspect]
     Active Substance: GABAPENTIN
     Route: 065
  15. GABAPENTIN [Suspect]
     Active Substance: GABAPENTIN
     Route: 065
  16. GABAPENTIN [Suspect]
     Active Substance: GABAPENTIN
  17. PREGABALIN [Suspect]
     Active Substance: PREGABALIN
     Indication: Neuropathy peripheral
  18. PREGABALIN [Suspect]
     Active Substance: PREGABALIN
     Route: 065
  19. PREGABALIN [Suspect]
     Active Substance: PREGABALIN
     Route: 065
  20. PREGABALIN [Suspect]
     Active Substance: PREGABALIN
  21. METHADONE [Suspect]
     Active Substance: METHADONE HYDROCHLORIDE
     Indication: Neuropathy peripheral
  22. METHADONE [Suspect]
     Active Substance: METHADONE HYDROCHLORIDE
     Route: 065
  23. METHADONE [Suspect]
     Active Substance: METHADONE HYDROCHLORIDE
     Route: 065
  24. METHADONE [Suspect]
     Active Substance: METHADONE HYDROCHLORIDE
  25. BORTEZOMIB [Suspect]
     Active Substance: BORTEZOMIB
     Indication: Plasma cell myeloma
  26. BORTEZOMIB [Suspect]
     Active Substance: BORTEZOMIB
     Route: 065
  27. BORTEZOMIB [Suspect]
     Active Substance: BORTEZOMIB
     Route: 065
  28. BORTEZOMIB [Suspect]
     Active Substance: BORTEZOMIB
  29. DULOXETINE [Suspect]
     Active Substance: DULOXETINE
     Indication: Neuropathy peripheral
  30. DULOXETINE [Suspect]
     Active Substance: DULOXETINE
     Route: 065
  31. DULOXETINE [Suspect]
     Active Substance: DULOXETINE
     Route: 065
  32. DULOXETINE [Suspect]
     Active Substance: DULOXETINE
  33. TOPIRAMATE [Suspect]
     Active Substance: TOPIRAMATE
     Indication: Neuropathy peripheral
  34. TOPIRAMATE [Suspect]
     Active Substance: TOPIRAMATE
     Route: 065
  35. TOPIRAMATE [Suspect]
     Active Substance: TOPIRAMATE
     Route: 065
  36. TOPIRAMATE [Suspect]
     Active Substance: TOPIRAMATE
  37. NORTRIPTYLINE [Suspect]
     Active Substance: NORTRIPTYLINE
     Indication: Neuropathy peripheral
  38. NORTRIPTYLINE [Suspect]
     Active Substance: NORTRIPTYLINE
     Route: 065
  39. NORTRIPTYLINE [Suspect]
     Active Substance: NORTRIPTYLINE
     Route: 065
  40. NORTRIPTYLINE [Suspect]
     Active Substance: NORTRIPTYLINE
  41. LIDOCAINE [Suspect]
     Active Substance: LIDOCAINE
     Indication: Neuropathy peripheral
  42. LIDOCAINE [Suspect]
     Active Substance: LIDOCAINE
     Route: 065
  43. LIDOCAINE [Suspect]
     Active Substance: LIDOCAINE
     Route: 065
  44. LIDOCAINE [Suspect]
     Active Substance: LIDOCAINE

REACTIONS (2)
  - Neuropathy peripheral [Recovering/Resolving]
  - Drug ineffective [Unknown]
